FAERS Safety Report 7125963-5 (Version None)
Quarter: 2010Q4

REPORT INFORMATION
  Report Type: 
  Country: None (occurrence: None)
  Receive Date: 20101129
  Receipt Date: 20101119
  Transmission Date: 20110411
  Serious: Yes (Death)
  Sender: FDA-Public Use
  Company Number: US-JNJFOC-20091106629

PATIENT
  Sex: Female
  Weight: 57.61 kg

DRUGS (5)
  1. SANDOZ [Suspect]
     Indication: ILL-DEFINED DISORDER
     Route: 062
  2. TETRAHYDROCANNABINOL [Concomitant]
     Route: 065
  3. TRAZODONE [Concomitant]
     Route: 065
  4. DIPHENHYDRAMINE HCL [Concomitant]
     Route: 065
  5. GABAPENTIN [Concomitant]
     Route: 065

REACTIONS (16)
  - ARTERIOSCLEROSIS CORONARY ARTERY [None]
  - BRAIN OEDEMA [None]
  - BREAKTHROUGH PAIN [None]
  - CARDIO-RESPIRATORY ARREST [None]
  - CARDIOMEGALY [None]
  - CORONARY ARTERY OCCLUSION [None]
  - EMPHYSEMA [None]
  - ENDOCARDIAL FIBROELASTOSIS [None]
  - HEPATOMEGALY [None]
  - NARCOTIC INTOXICATION [None]
  - NEPHROSCLEROSIS [None]
  - PRURITUS [None]
  - SUDDEN ONSET OF SLEEP [None]
  - UNRESPONSIVE TO STIMULI [None]
  - VOMITING [None]
  - WRONG TECHNIQUE IN DRUG USAGE PROCESS [None]
